FAERS Safety Report 25383836 (Version 1)
Quarter: 2025Q2

REPORT INFORMATION
  Report Type: Report from Study
  Country: JP (occurrence: JP)
  Receive Date: 20250602
  Receipt Date: 20250602
  Transmission Date: 20250716
  Serious: Yes (Death, Other)
  Sender: JOHNSON AND JOHNSON
  Company Number: JP-JNJFOC-20241232491

PATIENT

DRUGS (1)
  1. ERLEADA [Suspect]
     Active Substance: APALUTAMIDE
     Indication: Prostate cancer metastatic
     Route: 048

REACTIONS (6)
  - Neoplasm malignant [Fatal]
  - Adverse event [Unknown]
  - Hepatic function abnormal [Unknown]
  - Malaise [Unknown]
  - Rash [Recovering/Resolving]
  - Toxicity to various agents [Unknown]
